FAERS Safety Report 6636187-X (Version None)
Quarter: 2010Q1

REPORT INFORMATION
  Report Type: 
  Country: None (occurrence: None)
  Receive Date: 20100316
  Receipt Date: 20100302
  Transmission Date: 20100710
  Serious: Yes (Hospitalization, Other)
  Sender: FDA-Public Use
  Company Number: JP-ELI_LILLY_AND_COMPANY-JP201001001713

PATIENT
  Sex: Male
  Weight: 62 kg

DRUGS (22)
  1. ZYPREXA [Suspect]
     Indication: BIPOLAR I DISORDER
     Dosage: 20 MG, DAILY (1/D)
     Route: 048
     Dates: end: 20081124
  2. ZYPREXA [Suspect]
     Dosage: 2.5 MG, DAILY (1/D)
     Route: 048
     Dates: start: 20081211, end: 20081228
  3. ZYPREXA [Suspect]
     Dosage: 5 MG, DAILY (1/D)
     Route: 048
     Dates: start: 20081226
  4. LITHIUM CARBONATE [Concomitant]
     Dosage: 600 MG, DAILY (1/D)
     Route: 048
     Dates: end: 20081124
  5. DOGMATIL [Concomitant]
     Dosage: 100 MG, 3/D
     Route: 048
     Dates: end: 20081124
  6. DOGMATIL [Concomitant]
     Dosage: 50 MG, DAILY (1/D)
     Route: 048
     Dates: start: 20090115
  7. LEXIN [Concomitant]
     Dosage: 200 MG, DAILY (1/D)
     Route: 048
     Dates: end: 20081124
  8. SULTOPRIDE HYDROCHLORIDE [Concomitant]
     Dosage: 100 MG, 2/D
     Route: 048
     Dates: end: 20081124
  9. DEPAS [Concomitant]
     Dosage: 1 MG, DAILY (1/D)
     Route: 048
     Dates: end: 20081124
  10. HIRNAMIN [Concomitant]
     Dosage: 25 MG, AS NEEDED
     Route: 048
     Dates: end: 20081124
  11. FLUNITRAZEPAM [Concomitant]
     Dosage: 2 MG, DAILY (1/D)
     Route: 048
     Dates: end: 20081124
  12. AKINETON [Concomitant]
     Dosage: 1 MG, DAILY (1/D)
     Route: 048
     Dates: end: 20081124
  13. DORAL [Concomitant]
     Dosage: 15 MG, DAILY (1/D)
     Route: 048
     Dates: end: 20081124
  14. AMOBAN [Concomitant]
     Dosage: 10 MG, DAILY (1/D)
     Route: 048
     Dates: end: 20081124
  15. OMEPRAZOLE [Concomitant]
     Dosage: 20 MG, DAILY (1/D)
     Route: 048
     Dates: end: 20081124
  16. PRIMPERAN /00041901/ [Concomitant]
     Dosage: 5 MG, DAILY (1/D)
     Route: 048
     Dates: end: 20081124
  17. LIPIDIL [Concomitant]
     Dosage: 100 MG, DAILY (1/D)
     Route: 048
     Dates: end: 20081124
  18. URSO 250 [Concomitant]
     Dosage: 3 D/F, DAILY (1/D)
     Route: 048
     Dates: end: 20081124
  19. PURSENNID [Concomitant]
     Dosage: 1 D/F, DAILY (1/D)
     Route: 048
     Dates: end: 20081124
  20. ZITHROMAX [Concomitant]
     Dosage: 500 MG, DAILY (1/D)
     Route: 048
     Dates: start: 20081124, end: 20081124
  21. CALONAL [Concomitant]
     Dosage: 1200 MG, DAILY (1/D)
     Route: 048
     Dates: start: 20081124, end: 20081124
  22. CLONAZEPAM [Concomitant]
     Dosage: 1 MG, DAILY (1/D)
     Route: 048
     Dates: end: 20081124

REACTIONS (7)
  - ATAXIA [None]
  - DYSKINESIA [None]
  - ENCEPHALITIS [None]
  - ENCEPHALOPATHY [None]
  - NEUROLEPTIC MALIGNANT SYNDROME [None]
  - OFF LABEL USE [None]
  - VIRAL INFECTION [None]
